FAERS Safety Report 6131877-X (Version None)
Quarter: 2009Q1

REPORT INFORMATION
  Report Type: 
  Country: None (occurrence: None)
  Receive Date: 20090325
  Receipt Date: 20090313
  Transmission Date: 20090719
  Serious: Yes (Hospitalization)
  Sender: FDA-Public Use
  Company Number: JP-PFIZER INC-2009167201

PATIENT

DRUGS (9)
  1. BANAN [Suspect]
     Indication: CELLULITIS
     Dosage: 100 MG, 3X/DAY
     Route: 048
     Dates: start: 20090123, end: 20090126
  2. CRAVIT [Suspect]
     Indication: PURULENCE
     Dosage: 200 MG, 2X/DAY
     Route: 048
     Dates: start: 20090116, end: 20090119
  3. CRAVIT [Suspect]
     Indication: CELLULITIS
     Dosage: 100 MG, 2X/DAY
     Route: 048
     Dates: start: 20090120, end: 20090123
  4. CEFMETAZON [Suspect]
     Indication: CELLULITIS
     Dosage: 2 G, 2X/DAY
     Route: 041
     Dates: start: 20090116, end: 20090116
  5. CEFMETAZON [Suspect]
     Dosage: 2 G, 1X/DAY
     Route: 041
     Dates: start: 20090117, end: 20090117
  6. CEFMETAZON [Suspect]
     Dosage: 2 G, 1X/DAY
     Route: 041
     Dates: start: 20090119, end: 20090119
  7. CEFMETAZON [Suspect]
     Dosage: 2 G, 1X/DAY
     Route: 041
     Dates: start: 20090120, end: 20090120
  8. CEFMETAZON [Suspect]
     Dosage: 2 G, 1X/DAY
     Route: 041
     Dates: start: 20090123, end: 20090123
  9. GASTER [Concomitant]
     Indication: GASTRITIS
     Dosage: 10 MG, 2X/DAY
     Route: 048
     Dates: start: 20090116, end: 20090126

REACTIONS (2)
  - CELLULITIS [None]
  - RHABDOMYOLYSIS [None]
